FAERS Safety Report 4693625-X (Version None)
Quarter: 2005Q2

REPORT INFORMATION
  Report Type: 
  Country: None (occurrence: None)
  Receive Date: 20050615
  Receipt Date: 20050526
  Transmission Date: 20051028
  Serious: Yes (Disabling, Other)
  Sender: FDA-Public Use
  Company Number: USA050599082

PATIENT
  Age: 58 Year
  Sex: Male

DRUGS (3)
  1. HUMALOG [Suspect]
     Indication: DIABETES MELLITUS
     Dosage: 10 U AT NOON
     Dates: start: 19950101
  2. HUMULIN N [Suspect]
     Indication: DIABETES MELLITUS
     Dosage: 20 U IN THE EVENING
     Dates: start: 19950101
  3. HUMULIN 70/30 [Suspect]
     Indication: DIABETES MELLITUS
     Dosage: 30 U IN THE MORNING
     Dates: start: 19950101

REACTIONS (5)
  - CATARACT [None]
  - EYE HAEMORRHAGE [None]
  - INJECTION SITE PAIN [None]
  - VISUAL ACUITY REDUCED [None]
  - VITREOUS HAEMORRHAGE [None]
